FAERS Safety Report 21692708 (Version 1)
Quarter: 2022Q4

REPORT INFORMATION
  Report Type: Spontaneous
  Country: GB (occurrence: GB)
  Receive Date: 20221207
  Receipt Date: 20221207
  Transmission Date: 20230113
  Serious: No
  Sender: FDA-Public Use
  Company Number: None

PATIENT
  Sex: Female

DRUGS (25)
  1. TOLVAPTAN [Suspect]
     Active Substance: TOLVAPTAN
     Indication: Congenital cystic kidney disease
     Dosage: 15 MILLIGRAM TABLET (UNCOATED, ORAL)
     Route: 048
     Dates: start: 20180502
  2. TOLVAPTAN [Suspect]
     Active Substance: TOLVAPTAN
     Dosage: 45 MILLIGRAM TABLET (UNCOATED, ORAL)
     Route: 048
     Dates: start: 20180502
  3. TOLVAPTAN [Suspect]
     Active Substance: TOLVAPTAN
     Dosage: 60 MILLIGRAM TABLET (UNCOATED, ORAL)
     Route: 048
     Dates: start: 20180530
  4. TOLVAPTAN [Suspect]
     Active Substance: TOLVAPTAN
     Dosage: 30 MILLIGRAM TABLET (UNCOATED, ORAL)
     Route: 048
     Dates: start: 20180530
  5. TOLVAPTAN [Suspect]
     Active Substance: TOLVAPTAN
     Dosage: 30 MILLIGRAM TABLET (UNCOATED, ORAL)
     Route: 048
     Dates: start: 20180620
  6. TOLVAPTAN [Suspect]
     Active Substance: TOLVAPTAN
     Dosage: 90 MILLIGRAM TABLET (UNCOATED, ORAL)
     Route: 048
     Dates: start: 20180620
  7. AMITRIPTYLINE [Concomitant]
     Active Substance: AMITRIPTYLINE
     Indication: Fibromyalgia
     Dosage: 50 MILLIGRAM, QD
     Route: 048
     Dates: start: 201606
  8. AMOXICILLIN\CLAVULANATE POTASSIUM [Concomitant]
     Active Substance: AMOXICILLIN\CLAVULANATE POTASSIUM
     Indication: Urinary tract infection
     Dosage: 625 MILLIGRAM, TID
     Route: 048
     Dates: start: 20190919, end: 20190925
  9. AMOXICILLIN\CLAVULANATE POTASSIUM [Concomitant]
     Active Substance: AMOXICILLIN\CLAVULANATE POTASSIUM
     Indication: Breast mass
     Dosage: UNK, TID
     Route: 048
     Dates: start: 20190316, end: 20190323
  10. DOXAZOSIN [Concomitant]
     Active Substance: DOXAZOSIN MESYLATE
     Indication: Product used for unknown indication
     Dosage: 16 MILLIGRAM, QD
     Route: 048
     Dates: start: 201703, end: 20190424
  11. DOXAZOSIN [Concomitant]
     Active Substance: DOXAZOSIN MESYLATE
     Dosage: 4 MILLIGRAM, QD
     Route: 048
     Dates: start: 20190424
  12. BUDESONIDE\FORMOTEROL [Concomitant]
     Active Substance: BUDESONIDE\FORMOTEROL
     Indication: Asthma
     Dosage: 4 DOSAGE FORM, QD (2 PUFF) TWICE PER DAY
     Route: 065
     Dates: start: 2016
  13. FLUCLOXACILLIN [Concomitant]
     Active Substance: FLUCLOXACILLIN
     Indication: Breast mass
     Dosage: 50 MILLIGRAM, QID (FOUR TIMES PER DAY)
     Route: 048
     Dates: start: 20180618, end: 20180624
  14. FLUCLOXACILLIN [Concomitant]
     Active Substance: FLUCLOXACILLIN
     Dosage: 500 MILLIGRAM, QID (FOUR TIMES PER DAY
     Route: 048
     Dates: start: 20190508, end: 20190514
  15. GABAPENTIN [Concomitant]
     Active Substance: GABAPENTIN
     Indication: Pain
     Dosage: 300 MILLIGRAM, BID
     Route: 048
     Dates: start: 201805
  16. HYDRALAZINE [Concomitant]
     Active Substance: HYDRALAZINE HYDROCHLORIDE
     Indication: Hypertension
     Dosage: 25 MILLIGRAM, QD
     Route: 048
     Dates: start: 20180614, end: 20200519
  17. HYDRALAZINE [Concomitant]
     Active Substance: HYDRALAZINE HYDROCHLORIDE
     Dosage: 50 MILLIGRAM, BID
     Route: 048
     Dates: start: 20200520, end: 20200801
  18. HYDRALAZINE [Concomitant]
     Active Substance: HYDRALAZINE HYDROCHLORIDE
     Dosage: 25 MILLIGRAM, TID
     Route: 048
     Dates: start: 20201015
  19. OMEPRAZOLE [Concomitant]
     Active Substance: OMEPRAZOLE
     Indication: Gastrooesophageal reflux disease
     Dosage: 20 MILLIGRAM, QD
     Route: 048
     Dates: start: 2011
  20. ACETAMINOPHEN [Concomitant]
     Active Substance: ACETAMINOPHEN
     Indication: Pain
     Dosage: 1 GRAM, (AS NEEDED)
     Route: 048
     Dates: start: 2010
  21. PROPANOL (PROPRANOLOL HYDROCHLORIDE) [Concomitant]
     Active Substance: PROPRANOLOL HYDROCHLORIDE
     Indication: Hypertension
     Dosage: 130 MILLIGRAM, QD
     Route: 048
     Dates: start: 2016
  22. RAMIPRIL [Concomitant]
     Active Substance: RAMIPRIL
     Indication: Product used for unknown indication
     Dosage: 5 MILLIGRAM, QD
     Route: 048
     Dates: start: 201801, end: 20200325
  23. RAMIPRIL [Concomitant]
     Active Substance: RAMIPRIL
     Dosage: 75 MILLIGRAM, QD
     Route: 048
     Dates: start: 20200326
  24. ALBUTEROL [Concomitant]
     Active Substance: ALBUTEROL
     Indication: Asthma
     Dosage: 1 DOSAGE FORM, (1 PUFF  AS NEEDED)
     Route: 065
     Dates: start: 2014
  25. VENLAFAXINE [Concomitant]
     Active Substance: VENLAFAXINE HYDROCHLORIDE
     Indication: Depression
     Dosage: 75 MILLIGRAM, BID
     Route: 048
     Dates: start: 2013

REACTIONS (3)
  - Alopecia [Not Recovered/Not Resolved]
  - Pruritus [Not Recovered/Not Resolved]
  - Pruritus [Not Recovered/Not Resolved]

NARRATIVE: CASE EVENT DATE: 20190109
